FAERS Safety Report 13737670 (Version 1)
Quarter: 2017Q3

REPORT INFORMATION
  Report Type: Report from Study
  Country: US (occurrence: US)
  Receive Date: 20170710
  Receipt Date: 20170710
  Transmission Date: 20171127
  Serious: Yes (Other)
  Sender: FDA-Public Use
  Company Number: US-SAOL THERAPEUTICS-2016SAO00347

PATIENT
  Age: 38 Year
  Sex: Female

DRUGS (4)
  1. COMPOUNDED BACLOFEN [Suspect]
     Active Substance: BACLOFEN
     Indication: PAIN
     Dosage: 18.744 ?G, \DAY
     Route: 037
     Dates: start: 20130415
  2. DILAUDID [Suspect]
     Active Substance: HYDROMORPHONE HYDROCHLORIDE
     Dosage: 7.498 MG, \DAY
     Route: 037
     Dates: start: 20130415
  3. CLONIDINE. [Suspect]
     Active Substance: CLONIDINE
     Dosage: 93.72 ?G, \DAY
     Route: 037
     Dates: start: 20130415
  4. PRIALT [Suspect]
     Active Substance: ZICONOTIDE ACETATE
     Dosage: 0.9372 ?G, \DAY
     Dates: start: 20130415, end: 20130415

REACTIONS (4)
  - Drug withdrawal syndrome [Recovered/Resolved]
  - Pain [Recovered/Resolved]
  - Device occlusion [Unknown]
  - Off label use [Unknown]

NARRATIVE: CASE EVENT DATE: 20130415
